FAERS Safety Report 15800750 (Version 3)
Quarter: 2019Q1

REPORT INFORMATION
  Report Type: Report from Study
  Country: None (occurrence: AU)
  Receive Date: 20190109
  Receipt Date: 20190207
  Transmission Date: 20190417
  Serious: Yes (Hospitalization, Other)
  Sender: FDA-Public Use
  Company Number: AU-ABBVIE-19S-008-2616310-00

PATIENT
  Age: 59 Year
  Sex: Female

DRUGS (3)
  1. TAMSULOSIN [Concomitant]
     Active Substance: TAMSULOSIN
     Indication: PRODUCT USED FOR UNKNOWN INDICATION
  2. DUODOPA [Suspect]
     Active Substance: CARBIDOPA\LEVODOPA
     Indication: PARKINSON^S DISEASE
     Dosage: 100ML GEL CASSETTE, 16 HOURS
     Route: 050
     Dates: start: 20161018
  3. MIRABEGRON [Concomitant]
     Active Substance: MIRABEGRON
     Indication: PRODUCT USED FOR UNKNOWN INDICATION

REACTIONS (8)
  - Renal impairment [Recovered/Resolved]
  - Renal disorder [Unknown]
  - Hydronephrosis [Unknown]
  - Plasma cell myeloma [Unknown]
  - Urinary retention [Unknown]
  - Urosepsis [Unknown]
  - Hypercalcaemia [Recovered/Resolved]
  - Bladder dilatation [Unknown]

NARRATIVE: CASE EVENT DATE: 201901
